FAERS Safety Report 25330220 (Version 2)
Quarter: 2025Q2

REPORT INFORMATION
  Report Type: Spontaneous
  Country: TR (occurrence: TR)
  Receive Date: 20250519
  Receipt Date: 20250529
  Transmission Date: 20250716
  Serious: No
  Sender: ALEXION PHARMACEUTICALS
  Company Number: TR-ASTRAZENECA-202505TUR011710TR

PATIENT
  Age: 40 Year

DRUGS (1)
  1. SOLIRIS [Suspect]
     Active Substance: ECULIZUMAB
     Indication: Atypical haemolytic uraemic syndrome
     Route: 065

REACTIONS (1)
  - No adverse event [Unknown]
